FAERS Safety Report 5986934-5 (Version None)
Quarter: 2008Q4

REPORT INFORMATION
  Report Type: 
  Country: None (occurrence: None)
  Receive Date: 20081209
  Receipt Date: 20081201
  Transmission Date: 20090506
  Serious: Yes (Other)
  Sender: FDA-Public Use
  Company Number: US-AMGEN-US321483

PATIENT
  Sex: Female
  Weight: 61 kg

DRUGS (3)
  1. NPLATE [Suspect]
     Indication: IDIOPATHIC THROMBOCYTOPENIC PURPURA
     Route: 058
     Dates: start: 20081118
  2. COUMADIN [Concomitant]
     Route: 065
  3. PREDNISONE TAB [Concomitant]
     Route: 065

REACTIONS (1)
  - HYPOAESTHESIA [None]
